FAERS Safety Report 11247972 (Version 1)
Quarter: 2015Q3

REPORT INFORMATION
  Report Type: Spontaneous
  Country: IT (occurrence: IT)
  Receive Date: 20150708
  Receipt Date: 20150708
  Transmission Date: 20151125
  Serious: Yes (Hospitalization)
  Sender: FDA-Public Use
  Company Number: IT-AUROBINDO-AUR-APL-2015-05736

PATIENT
  Age: 3 Year
  Sex: Male

DRUGS (1)
  1. CITALOPRAM ORAL DROPS [Suspect]
     Active Substance: CITALOPRAM HYDROBROMIDE
     Indication: ACCIDENTAL EXPOSURE TO PRODUCT BY CHILD
     Dosage: 3 GTT, TOTAL
     Route: 048
     Dates: start: 20150114, end: 20150114

REACTIONS (4)
  - Vomiting [Recovered/Resolved]
  - Accidental exposure to product by child [Recovered/Resolved]
  - Somnolence [Recovered/Resolved]
  - Medication error [Recovered/Resolved]

NARRATIVE: CASE EVENT DATE: 20150114
